FAERS Safety Report 24767826 (Version 1)
Quarter: 2024Q4

REPORT INFORMATION
  Report Type: Spontaneous
  Country: CN (occurrence: CN)
  Receive Date: 20241223
  Receipt Date: 20241223
  Transmission Date: 20250115
  Serious: Yes (Hospitalization, Other)
  Sender: MERCK
  Company Number: CN-009507513-2412CHN007901

PATIENT
  Age: 28 Year
  Sex: Female

DRUGS (2)
  1. STEGLATRO [Suspect]
     Active Substance: ERTUGLIFLOZIN PIDOLATE
     Indication: Diabetes mellitus management
     Dosage: 3 TABLET, QD
     Route: 048
     Dates: start: 20241212, end: 20241217
  2. STEGLATRO [Suspect]
     Active Substance: ERTUGLIFLOZIN PIDOLATE
     Dosage: 1 TABLET, QD
     Route: 048
     Dates: start: 202412, end: 202412

REACTIONS (4)
  - Diabetes mellitus inadequate control [Unknown]
  - Pollakiuria [Recovering/Resolving]
  - Micturition urgency [Unknown]
  - Intentional product misuse [Unknown]

NARRATIVE: CASE EVENT DATE: 20241201
